FAERS Safety Report 17292756 (Version 1)
Quarter: 2020Q1

REPORT INFORMATION
  Report Type: Report from Study
  Country: GT (occurrence: GT)
  Receive Date: 20200121
  Receipt Date: 20200121
  Transmission Date: 20200409
  Serious: Yes (Death)
  Sender: FDA-Public Use
  Company Number: GT-BAYER-2020-005332

PATIENT
  Age: 35 Year
  Sex: Female

DRUGS (1)
  1. NEXAVAR [Suspect]
     Active Substance: SORAFENIB
     Indication: RENAL CELL CARCINOMA
     Dosage: 200 MG, BID (200 MG IN THE MORNING AND 200 MG AT NIGHT)
     Dates: start: 20191212, end: 20200101

REACTIONS (2)
  - Off label use [None]
  - Myocardial infarction [Fatal]

NARRATIVE: CASE EVENT DATE: 20191212
